FAERS Safety Report 5406997-5 (Version None)
Quarter: 2007Q3

REPORT INFORMATION
  Report Type: 
  Country: None (occurrence: None)
  Receive Date: 20070807
  Receipt Date: 20070803
  Transmission Date: 20080115
  Serious: Yes (Hospitalization)
  Sender: FDA-Public Use
  Company Number: US-BRISTOL-MYERS SQUIBB COMPANY-13868013

PATIENT
  Age: 55 Year
  Sex: Male
  Weight: 77 kg

DRUGS (8)
  1. CISPLATIN [Suspect]
     Indication: SQUAMOUS CELL CARCINOMA
     Dosage: 199MG ON 25JUN07
     Route: 042
     Dates: start: 20070716, end: 20070716
  2. RADIATION THERAPY [Suspect]
     Indication: SQUAMOUS CELL CARCINOMA
     Dosage: TYPE OF RADIATION ADMINISTRATION - EXTERNAL BEAM/IMRT
     Dates: start: 20070625
  3. MIRALAX [Concomitant]
     Dosage: 17GM QD PER G TUBE
  4. MORPHINE [Concomitant]
     Dosage: 15-30MG PER G-TUBE
  5. PERIDEX [Concomitant]
  6. PROTONIX [Concomitant]
     Dosage: 40MG QD PER G-TUBE
  7. REGLAN [Concomitant]
     Dosage: 10MG Q8H PER G-TUBE
  8. LORAZEPAM [Concomitant]

REACTIONS (7)
  - CONSTIPATION [None]
  - DEHYDRATION [None]
  - DRY MOUTH [None]
  - MUSCULAR WEAKNESS [None]
  - NAUSEA [None]
  - ORAL PAIN [None]
  - STOMATITIS [None]
